FAERS Safety Report 4337072-9 (Version None)
Quarter: 2004Q1

REPORT INFORMATION
  Report Type: 
  Country: None (occurrence: None)
  Receive Date: 20040329
  Receipt Date: 20040122
  Transmission Date: 20041129
  Serious: No
  Sender: FDA-Public Use
  Company Number: USA040157296

PATIENT
  Age: 6 Year
  Sex: Male
  Weight: 21 kg

DRUGS (1)
  1. STRATTERA [Suspect]
     Dosage: 50 MG/IN THE MORNING
     Dates: start: 20031001

REACTIONS (1)
  - ACCIDENTAL OVERDOSE [None]
